FAERS Safety Report 8425713 (Version 5)
Quarter: 2012Q4

REPORT INFORMATION
  Report Type: 
  Country: KR (occurrence: KR)
  Receive Date: 20120224
  Receipt Date: 20121114
  Transmission Date: 20130627
  Serious: Yes (Hospitalization)
  Sender: FDA-Public Use
  Company Number: PHHO2012KR002213

PATIENT
  Age: 53 Year
  Sex: Male
  Weight: 95.1 kg

DRUGS (1)
  1. AFINITOR [Suspect]
     Indication: GASTRIC CANCER
     Dosage: 10 mg, UNK
     Route: 048
     Dates: start: 20111230, end: 20120221

REACTIONS (4)
  - Abdominal pain [Recovered/Resolved]
  - Subdural haemorrhage [Not Recovered/Not Resolved]
  - Decreased appetite [Recovering/Resolving]
  - Azotaemia [Recovered/Resolved]
